FAERS Safety Report 5760397-7 (Version None)
Quarter: 2008Q2

REPORT INFORMATION
  Report Type: 
  Country: None (occurrence: None)
  Receive Date: 20080602
  Receipt Date: 20080528
  Transmission Date: 20081010
  Serious: Yes (Hospitalization, Other)
  Sender: FDA-Public Use
  Company Number: 027872

PATIENT
  Age: 71 Year
  Sex: Female

DRUGS (6)
  1. TAMOXIFEN CITRATE [Suspect]
     Indication: BREAST CANCER
     Dosage: 20 MG, (10 MG, 2/DAY: EVERY DAY), ORAL
     Route: 048
     Dates: start: 20051209
  2. HEXAQUINE (THIAMINE HYDROCHLORIDE, NIAOULI OIL, QUININE BENZOATE) [Concomitant]
  3. PIASCLEDINE (SOYA OIL, PERSEAE OLEUM) [Concomitant]
  4. NISISCO (VALSARTAN) [Concomitant]
  5. GINKOGINK (GINKGO BILOBA EXTRACT) [Concomitant]
  6. LEXOMIL (BROMAZEPAM) [Concomitant]

REACTIONS (2)
  - CONDITION AGGRAVATED [None]
  - VENOUS STASIS [None]
